FAERS Safety Report 6853414-4 (Version None)
Quarter: 2010Q3

REPORT INFORMATION
  Report Type: 
  Country: None (occurrence: None)
  Receive Date: 20100717
  Receipt Date: 20071209
  Transmission Date: 20110219
  Serious: No
  Sender: FDA-Public Use
  Company Number: US-PFIZER INC-2007105320

PATIENT
  Sex: Male
  Weight: 77.272 kg

DRUGS (5)
  1. CHANTIX [Suspect]
     Indication: SMOKING CESSATION THERAPY
     Dosage: EVERY DAY
     Dates: start: 20071202
  2. ACEBUTOLOL [Concomitant]
  3. MIDODRINE HYDROCHLORIDE [Concomitant]
  4. PAMELOR [Concomitant]
  5. PERCOCET [Concomitant]

REACTIONS (4)
  - DIZZINESS [None]
  - MIGRAINE [None]
  - NAUSEA [None]
  - VOMITING [None]
